FAERS Safety Report 10598547 (Version 1)
Quarter: 2014Q4

REPORT INFORMATION
  Report Type: Spontaneous
  Country: CA (occurrence: CA)
  Receive Date: 20141121
  Receipt Date: 20141121
  Transmission Date: 20150529
  Serious: Yes (Other)
  Sender: FDA-Public Use
  Company Number: CA-009507513-1411CAN008665

PATIENT
  Sex: Female

DRUGS (1)
  1. EMEND [Suspect]
     Active Substance: APREPITANT
     Indication: OVARIAN CANCER
     Dosage: DOSE: TRI PACK CYCLE: 125 MG (DAY 1), 80 MG (DAY 2), 80 MG (DAY 3), FREQUENCY: THREE DAY
     Route: 048

REACTIONS (1)
  - Corneal disorder [Unknown]
